FAERS Safety Report 5289784-0 (Version None)
Quarter: 2007Q2

REPORT INFORMATION
  Report Type: 
  Country: None (occurrence: None)
  Receive Date: 20070406
  Receipt Date: 20070327
  Transmission Date: 20071010
  Serious: Yes (Hospitalization)
  Sender: FDA-Public Use
  Company Number: DE-PFIZER INC-2007024862

PATIENT
  Age: 27 Year
  Sex: Female

DRUGS (3)
  1. CLINDAMYCIN HCL [Interacting]
     Indication: TOOTH DISORDER
     Route: 048
     Dates: start: 20070316, end: 20070325
  2. TRAMADOL HCL [Suspect]
     Indication: BACK PAIN
  3. MYDOCALM (LIDOCAINE HYDROCHLORIDE/TOLPERISONE HYDROCHLORIDE) [Interacting]
     Indication: BACK PAIN
     Route: 048

REACTIONS (2)
  - DRUG INTERACTION [None]
  - URINARY RETENTION [None]
